FAERS Safety Report 24092896 (Version 1)
Quarter: 2024Q3

REPORT INFORMATION
  Report Type: Spontaneous
  Country: GB (occurrence: GB)
  Receive Date: 20240715
  Receipt Date: 20240715
  Transmission Date: 20241016
  Serious: Yes (Other)
  Sender: TEVA
  Company Number: None

PATIENT
  Age: 53 Year
  Sex: Male
  Weight: 74 kg

DRUGS (1)
  1. FLUOXETINE [Suspect]
     Active Substance: FLUOXETINE HYDROCHLORIDE
     Indication: Major depression
     Dosage: 20MG ONCE A DAY ON THE MORNING
     Dates: start: 20150330, end: 20160629

REACTIONS (15)
  - Vertigo [Unknown]
  - Gastric hypermotility [Recovered/Resolved with Sequelae]
  - Migraine with aura [Unknown]
  - Nystagmus [Unknown]
  - Hallucination [Unknown]
  - Optic nerve cupping [Not Recovered/Not Resolved]
  - Ototoxicity [Not Recovered/Not Resolved]
  - Diarrhoea [Recovered/Resolved]
  - Visual field defect [Not Recovered/Not Resolved]
  - Urticaria [Not Recovered/Not Resolved]
  - Insomnia [Not Recovered/Not Resolved]
  - Tinnitus [Not Recovered/Not Resolved]
  - Abnormal dreams [Not Recovered/Not Resolved]
  - Vision blurred [Unknown]
  - Food intolerance [Recovered/Resolved]

NARRATIVE: CASE EVENT DATE: 20071001
